FAERS Safety Report 11250664 (Version 1)
Quarter: 2015Q3

REPORT INFORMATION
  Report Type: Spontaneous
  Country: US (occurrence: US)
  Receive Date: 20150708
  Receipt Date: 20150708
  Transmission Date: 20151125
  Serious: Yes (Death)
  Sender: FDA-Public Use
  Company Number: US-ELI_LILLY_AND_COMPANY-US201101006039

PATIENT
  Sex: Male
  Weight: 65.76 kg

DRUGS (9)
  1. MORPHINE SULFATE. [Concomitant]
     Active Substance: MORPHINE SULFATE
  2. MS CONTIN [Concomitant]
     Active Substance: MORPHINE SULFATE
  3. KLOR-CON [Concomitant]
     Active Substance: POTASSIUM CHLORIDE
  4. PRILOSEC [Concomitant]
     Active Substance: OMEPRAZOLE MAGNESIUM
  5. ZOMETA [Concomitant]
     Active Substance: ZOLEDRONIC ACID
  6. GEMZAR [Suspect]
     Active Substance: GEMCITABINE HYDROCHLORIDE
     Indication: LUNG NEOPLASM MALIGNANT
     Dosage: 1600 MG, UNK
     Route: 042
     Dates: start: 20100616
  7. DECADRON [Concomitant]
     Active Substance: DEXAMETHASONE
  8. COLACE [Concomitant]
     Active Substance: DOCUSATE SODIUM
  9. ALOXI [Concomitant]
     Active Substance: PALONOSETRON HYDROCHLORIDE

REACTIONS (1)
  - Malignant neoplasm progression [Fatal]
